FAERS Safety Report 9066425 (Version 46)
Quarter: 2016Q4

REPORT INFORMATION
  Report Type: Report from Study
  Country: CA (occurrence: CA)
  Receive Date: 20130214
  Receipt Date: 20161028
  Transmission Date: 20170207
  Serious: Yes (Hospitalization, Other)
  Sender: FDA-Public Use
  Company Number: CA-ROCHE-1016821

PATIENT
  Age: 68 Year
  Sex: Female
  Weight: 91 kg

DRUGS (16)
  1. ACTEMRA [Suspect]
     Active Substance: TOCILIZUMAB
     Route: 042
     Dates: start: 20131129
  2. SYMBICORT [Concomitant]
     Active Substance: BUDESONIDE\FORMOTEROL FUMARATE DIHYDRATE
     Route: 065
  3. HYDRALAZINE [Concomitant]
     Active Substance: HYDRALAZINE HYDROCHLORIDE
     Indication: BLOOD PRESSURE MEASUREMENT
     Route: 065
  4. HYDRALAZINE [Concomitant]
     Active Substance: HYDRALAZINE HYDROCHLORIDE
     Indication: BLOOD PRESSURE MEASUREMENT
  5. AMITRIPTYLINE [Concomitant]
     Active Substance: AMITRIPTYLINE
  6. ACTEMRA [Suspect]
     Active Substance: TOCILIZUMAB
     Indication: RHEUMATOID ARTHRITIS
     Route: 042
     Dates: start: 20110503
  7. ACTEMRA [Suspect]
     Active Substance: TOCILIZUMAB
     Route: 042
     Dates: start: 20150416, end: 20150521
  8. PREDNISONE. [Concomitant]
     Active Substance: PREDNISONE
  9. ACTEMRA [Suspect]
     Active Substance: TOCILIZUMAB
     Route: 042
     Dates: start: 20140715
  10. ASPIRIN. [Concomitant]
     Active Substance: ASPIRIN
     Route: 065
  11. RANITIDINE. [Concomitant]
     Active Substance: RANITIDINE
     Route: 065
  12. ACTEMRA [Suspect]
     Active Substance: TOCILIZUMAB
     Indication: RHEUMATOID ARTHRITIS
     Route: 058
     Dates: start: 201508
  13. RISEDRONATE [Concomitant]
     Active Substance: RISEDRONATE SODIUM
     Route: 065
  14. MICARDIS [Concomitant]
     Active Substance: TELMISARTAN
     Indication: BLOOD PRESSURE MEASUREMENT
     Route: 065
  15. TYLENOL [Concomitant]
     Active Substance: ACETAMINOPHEN
     Route: 065
  16. ACTEMRA [Suspect]
     Active Substance: TOCILIZUMAB
     Route: 042
     Dates: start: 20141218

REACTIONS (34)
  - Joint swelling [Recovered/Resolved]
  - Haemorrhage [Recovered/Resolved]
  - Sleep apnoea syndrome [Not Recovered/Not Resolved]
  - Localised infection [Recovered/Resolved]
  - Weight decreased [Not Recovered/Not Resolved]
  - Actinic keratosis [Recovering/Resolving]
  - Haematoma [Not Recovered/Not Resolved]
  - Postoperative wound infection [Recovered/Resolved]
  - Urine abnormality [Not Recovered/Not Resolved]
  - Lower respiratory tract infection [Recovered/Resolved]
  - Heart rate decreased [Unknown]
  - Infusion related reaction [Unknown]
  - Nasal disorder [Unknown]
  - Cellulitis [Not Recovered/Not Resolved]
  - Mass [Not Recovered/Not Resolved]
  - Vision blurred [Unknown]
  - Lip infection [Not Recovered/Not Resolved]
  - Tooth extraction [Recovered/Resolved]
  - Limb discomfort [Recovered/Resolved]
  - Hypoaesthesia [Recovered/Resolved]
  - Arthralgia [Recovered/Resolved]
  - Cataract [Recovered/Resolved]
  - Ear disorder [Recovered/Resolved]
  - Precancerous skin lesion [Recovered/Resolved]
  - Angina bullosa haemorrhagica [Unknown]
  - Tinnitus [Not Recovered/Not Resolved]
  - Hypotension [Unknown]
  - Dental caries [Unknown]
  - Ligament sprain [Recovered/Resolved]
  - Urinary tract infection [Unknown]
  - Sinusitis [Recovering/Resolving]
  - Bronchitis [Unknown]
  - Lip infection [Unknown]
  - Pollakiuria [Not Recovered/Not Resolved]

NARRATIVE: CASE EVENT DATE: 20111201
